FAERS Safety Report 4319534-3 (Version None)
Quarter: 2004Q1

REPORT INFORMATION
  Report Type: 
  Country: None (occurrence: None)
  Receive Date: 20040318
  Receipt Date: 20040318
  Transmission Date: 20041129
  Serious: Yes (Hospitalization)
  Sender: FDA-Public Use
  Company Number: None

PATIENT
  Sex: Male
  Weight: 154.223 kg

DRUGS (2)
  1. KEPPRA [Suspect]
  2. CIPRO [Suspect]

REACTIONS (2)
  - CONVULSION [None]
  - CYST [None]
